FAERS Safety Report 8827396 (Version 1)
Quarter: 2012Q4

REPORT INFORMATION
  Report Type: 
  Country: US (occurrence: US)
  Receive Date: 20121005
  Receipt Date: 20121005
  Transmission Date: 20130627
  Serious: No
  Sender: FDA-Public Use
  Company Number: US-BRISTOL-MYERS SQUIBB COMPANY-16431645

PATIENT
  Age: 59 Year
  Sex: Female
  Weight: 95 kg

DRUGS (2)
  1. AVAPRO [Suspect]
     Indication: HYPERTENSION
     Dates: start: 2003
  2. DIOVAN [Concomitant]
     Indication: HYPERTENSION

REACTIONS (1)
  - Underdose [Unknown]
